FAERS Safety Report 5622465-X (Version None)
Quarter: 2008Q1

REPORT INFORMATION
  Report Type: 
  Country: None (occurrence: None)
  Receive Date: 20080114
  Receipt Date: 20070911
  Transmission Date: 20080703
  Serious: Yes (Hospitalization)
  Sender: FDA-Public Use
  Company Number: A03200705536

PATIENT
  Age: 56 Year
  Sex: Male
  Weight: 102.04 kg

DRUGS (9)
  1. PLAVIX [Suspect]
     Indication: CORONARY ARTERY OCCLUSION
     Dosage: 75 MG QD - ORAL
     Route: 048
     Dates: start: 20060101, end: 20060101
  2. PLAVIX [Suspect]
     Indication: STENT PLACEMENT
     Dosage: 75 MG QD - ORAL
     Route: 048
     Dates: start: 20060101, end: 20060101
  3. PLAVIX [Suspect]
     Indication: CORONARY ARTERY OCCLUSION
     Dosage: 75 MG QD - ORAL
     Route: 048
     Dates: start: 20060501
  4. PLAVIX [Suspect]
     Indication: STENT PLACEMENT
     Dosage: 75 MG QD - ORAL
     Route: 048
     Dates: start: 20060501
  5. ACETYLSALICYLIC ACID SRT [Concomitant]
  6. VERAPAMIL [Concomitant]
  7. LEVOTHYROXINE SODIUM [Concomitant]
  8. OLMESARTAN MEDOXOMIL [Concomitant]
  9. ENALAPRIL MALEATE [Concomitant]

REACTIONS (1)
  - CHEST PAIN [None]
